FAERS Safety Report 24772763 (Version 2)
Quarter: 2025Q1

REPORT INFORMATION
  Report Type: Spontaneous
  Country: JP (occurrence: JP)
  Receive Date: 20241225
  Receipt Date: 20250206
  Transmission Date: 20250408
  Serious: Yes (Death, Hospitalization, Other)
  Sender: GLAXOSMITHKLINE
  Company Number: JP-GSKNCCC-Case-02153354_AE-91817

PATIENT

DRUGS (1)
  1. MOMELOTINIB [Suspect]
     Active Substance: MOMELOTINIB
     Dates: start: 20241122

REACTIONS (5)
  - Death [Fatal]
  - Full blood count decreased [Unknown]
  - Myelosuppression [Unknown]
  - Anaemia [Unknown]
  - Blood disorder [Unknown]
